FAERS Safety Report 8817212 (Version 1)
Quarter: 2012Q4

REPORT INFORMATION
  Report Type: 
  Country: US (occurrence: US)
  Receive Date: 20121001
  Receipt Date: 20121001
  Transmission Date: 20130627
  Serious: No
  Sender: FDA-Public Use
  Company Number: US-009507513-1208USA007291

PATIENT
  Sex: Male

DRUGS (3)
  1. PEG-INTRON [Suspect]
     Indication: HEPATITIS C
     Dosage: REDIPEN
  2. REBETOL [Suspect]
     Indication: HEPATITIS C
     Dosage: UNK
  3. TELAPREVIR [Concomitant]
     Indication: HEPATITIS C
     Dosage: UNK

REACTIONS (3)
  - Anorectal discomfort [Unknown]
  - Skin disorder [Unknown]
  - Pruritus [Recovering/Resolving]
